FAERS Safety Report 5092298-4 (Version None)
Quarter: 2006Q3

REPORT INFORMATION
  Report Type: 
  Country: None (occurrence: None)
  Receive Date: 20060825
  Receipt Date: 20060816
  Transmission Date: 20061208
  Serious: Yes (Hospitalization)
  Sender: FDA-Public Use
  Company Number: HQWYE632617AUG06

PATIENT
  Age: 80 Year
  Sex: Female

DRUGS (5)
  1. TYGACIL [Suspect]
     Indication: SKIN INFECTION
     Dosage: INTRAVENOUS
     Route: 042
     Dates: start: 20060701, end: 20060816
  2. LEXAPRO [Concomitant]
  3. ALLOPURINOL [Concomitant]
  4. DILTIAZEM HCL [Concomitant]
  5. UNKNOWN [Concomitant]

REACTIONS (2)
  - DIAPHRAGM MUSCLE WEAKNESS [None]
  - DYSPNOEA [None]
